FAERS Safety Report 21018857 (Version 6)
Quarter: 2025Q3

REPORT INFORMATION
  Report Type: Spontaneous
  Country: EU (occurrence: EU)
  Receive Date: 20220628
  Receipt Date: 20250805
  Transmission Date: 20251021
  Serious: Yes (Death, Other)
  Sender: TAKEDA
  Company Number: EU-STADA-251342

PATIENT
  Age: 17 Year
  Sex: Male

DRUGS (18)
  1. VELCADE [Suspect]
     Active Substance: BORTEZOMIB
     Indication: T-cell type acute leukaemia
  2. VINCRISTINE [Suspect]
     Active Substance: VINCRISTINE
     Indication: T-cell type acute leukaemia
  3. CYTARABINE [Suspect]
     Active Substance: CYTARABINE
     Indication: T-cell type acute leukaemia
  4. METHYLPREDNISOLONE [Suspect]
     Active Substance: METHYLPREDNISOLONE
     Indication: T-cell type acute leukaemia
  5. METHYLPREDNISOLONE [Suspect]
     Active Substance: METHYLPREDNISOLONE
  6. DOXORUBICIN [Suspect]
     Active Substance: DOXORUBICIN
     Indication: T-cell type acute leukaemia
  7. FLUDARABINE [Suspect]
     Active Substance: FLUDARABINE PHOSPHATE
     Indication: T-cell type acute leukaemia
  8. DOXORUBICIN [Suspect]
     Active Substance: DOXORUBICIN
     Indication: T-cell type acute leukaemia
  9. PEGASPARGASE [Suspect]
     Active Substance: PEGASPARGASE
     Indication: T-cell type acute leukaemia
  10. ASPARAGINASE [Suspect]
     Active Substance: ASPARAGINASE
     Indication: T-cell type acute leukaemia
  11. DEXAMETHASONE [Concomitant]
     Active Substance: DEXAMETHASONE
     Indication: T-cell type acute leukaemia
  12. DEXAMETHASONE [Concomitant]
     Active Substance: DEXAMETHASONE
     Indication: Acute lymphocytic leukaemia
  13. DEXAMETHASONE [Concomitant]
     Active Substance: DEXAMETHASONE
  14. DEXAMETHASONE [Concomitant]
     Active Substance: DEXAMETHASONE
  15. ANAKINRA [Concomitant]
     Active Substance: ANAKINRA
     Indication: T-cell type acute leukaemia
     Dosage: 100 MILLIGRAM, BID
  16. ANAKINRA [Concomitant]
     Active Substance: ANAKINRA
     Dosage: 100 MILLIGRAM, QD
  17. ANAKINRA [Concomitant]
     Active Substance: ANAKINRA
     Indication: T-cell type acute leukaemia
     Dosage: 200 MILLIGRAM, QD
  18. METHOTREXATE [Concomitant]
     Active Substance: METHOTREXATE
     Indication: Product used for unknown indication

REACTIONS (10)
  - Sepsis [Fatal]
  - Cardiac failure [Fatal]
  - Venoocclusive liver disease [Fatal]
  - Cytopenia [Fatal]
  - Cystitis haemorrhagic [Fatal]
  - Renal failure [Fatal]
  - Cytomegalovirus hepatitis [Fatal]
  - Hypertension [Unknown]
  - Skin striae [Unknown]
  - Renal disorder [Unknown]
